FAERS Safety Report 24147228 (Version 1)
Quarter: 2024Q3

REPORT INFORMATION
  Report Type: Spontaneous
  Country: US (occurrence: None)
  Receive Date: 20240726
  Receipt Date: 20240726
  Transmission Date: 20241016
  Serious: Yes (Other)
  Sender: Public
  Company Number: None

PATIENT
  Age: 58 Year
  Sex: Female

DRUGS (1)
  1. OTEZLA [Suspect]
     Active Substance: APREMILAST
     Indication: Psoriasis
     Dosage: 30 MG TWICE A DAY ORAL?
     Route: 048
     Dates: start: 20240501, end: 20240720

REACTIONS (3)
  - Headache [None]
  - Tinnitus [None]
  - Therapy change [None]

NARRATIVE: CASE EVENT DATE: 20240726
